FAERS Safety Report 6081696-8 (Version None)
Quarter: 2009Q1

REPORT INFORMATION
  Report Type: 
  Country: None (occurrence: None)
  Receive Date: 20090130
  Receipt Date: 20080129
  Transmission Date: 20090719
  Serious: Yes (Other)
  Sender: FDA-Public Use
  Company Number: US-WYE-H02368408

PATIENT
  Sex: Female

DRUGS (2)
  1. CORDARONE [Suspect]
  2. XELODA [Suspect]

REACTIONS (1)
  - ATRIOVENTRICULAR BLOCK [None]
